FAERS Safety Report 9951444 (Version 2)
Quarter: 2014Q2

REPORT INFORMATION
  Report Type: Spontaneous
  Country: JP (occurrence: JP)
  Receive Date: 20140304
  Receipt Date: 20140620
  Transmission Date: 20141212
  Serious: Yes (Other)
  Sender: FDA-Public Use
  Company Number: JP-ELI_LILLY_AND_COMPANY-JP201402006859

PATIENT
  Age: 69 Year
  Sex: Female

DRUGS (2)
  1. GEMZAR [Suspect]
     Indication: BLADDER CANCER STAGE II
     Route: 042
  2. CISPLATIN [Concomitant]
     Indication: BLADDER CANCER STAGE II

REACTIONS (4)
  - Pyelonephritis [Recovering/Resolving]
  - Hydronephrosis [Recovering/Resolving]
  - Febrile neutropenia [Recovering/Resolving]
  - Pyrexia [Recovered/Resolved]
